FAERS Safety Report 25723952 (Version 1)
Quarter: 2025Q3

REPORT INFORMATION
  Report Type: Spontaneous
  Country: US (occurrence: US)
  Receive Date: 20250825
  Receipt Date: 20250825
  Transmission Date: 20251020
  Serious: Yes (Other)
  Sender: AMGEN
  Company Number: US-AMGEN-USASP2025162895

PATIENT
  Age: 26 Year
  Sex: Female

DRUGS (12)
  1. PREDNISONE [Suspect]
     Active Substance: PREDNISONE
     Indication: Acquired epidermolysis bullosa
     Dosage: 20 MILLIGRAM, QD TAPERED OVER 4 WEEKS
     Route: 065
  2. RITUXIMAB [Suspect]
     Active Substance: RITUXIMAB
     Indication: Acquired epidermolysis bullosa
     Dosage: INFUSED IN 2 DOSES, 2 WEEKS APART
     Route: 065
  3. RITUXIMAB [Suspect]
     Active Substance: RITUXIMAB
     Route: 065
  4. DEXAMETHASONE [Concomitant]
     Active Substance: DEXAMETHASONE
     Dosage: 8 MILLIGRAM, QD
     Route: 040
  5. CYCLOSPORINE [Concomitant]
     Active Substance: CYCLOSPORINE
  6. METHOTREXATE [Concomitant]
     Active Substance: METHOTREXATE
     Route: 065
  7. DAPSONE [Concomitant]
     Active Substance: DAPSONE
     Dosage: 50 MILLIGRAM, QD
     Route: 065
  8. DAPSONE [Concomitant]
     Active Substance: DAPSONE
     Dosage: UPTITRATED TO 100 MG OVER 4 WEEKS
     Route: 065
  9. DUPILUMAB [Concomitant]
     Active Substance: DUPILUMAB
     Route: 065
  10. UPADACITINIB [Concomitant]
     Active Substance: UPADACITINIB
     Dosage: 15 MILLIGRAM, QD INITIATED FOR 4 WEEKS
     Route: 065
  11. UPADACITINIB [Concomitant]
     Active Substance: UPADACITINIB
     Dosage: 15 MILLIGRAM, QD INITIATED FOR 4 WEEKS
     Route: 065
  12. UPADACITINIB [Concomitant]
     Active Substance: UPADACITINIB
     Dosage: 15 MILLIGRAM, QD MAINTENANCE THERAPY
     Route: 065

REACTIONS (7)
  - Gastric ulcer [Unknown]
  - Hyperglycaemia [Unknown]
  - Hypertransaminasaemia [Unknown]
  - Upper respiratory tract infection [Unknown]
  - Nasopharyngitis [Unknown]
  - Off label use [Unknown]
  - Hypertension [Unknown]
